FAERS Safety Report 9814992 (Version 1)
Quarter: 2014Q1

REPORT INFORMATION
  Report Type: Spontaneous
  Country: DE (occurrence: DE)
  Receive Date: 20140114
  Receipt Date: 20140114
  Transmission Date: 20141002
  Serious: Yes (Other)
  Sender: FDA-Public Use
  Company Number: DE-AMGEN-DEUSP2014001506

PATIENT
  Age: 13 Year
  Sex: Female
  Weight: 66 kg

DRUGS (2)
  1. ENBREL [Suspect]
     Indication: PRODUCT USED FOR UNKNOWN INDICATION
     Dosage: 25 MG 1X/6D
     Route: 065
     Dates: start: 201009, end: 201209
  2. METHOTREXATE SODIUM [Suspect]
     Indication: PRODUCT USED FOR UNKNOWN INDICATION
     Dosage: 12.5 MG, WEEKLY
     Route: 065
     Dates: end: 201307

REACTIONS (5)
  - Juvenile idiopathic arthritis [Unknown]
  - Ovarian neoplasm [Not Recovered/Not Resolved]
  - Virilism [Unknown]
  - Amenorrhoea [Not Recovered/Not Resolved]
  - Hirsutism [Not Recovered/Not Resolved]
